FAERS Safety Report 12155885 (Version 1)
Quarter: 2016Q1

REPORT INFORMATION
  Report Type: Report from Study
  Country: DE (occurrence: DE)
  Receive Date: 20160307
  Receipt Date: 20160307
  Transmission Date: 20160526
  Serious: Yes (Hospitalization, Other)
  Sender: FDA-Public Use
  Company Number: DE-ABBVIE-15K-062-1425795-00

PATIENT
  Age: 41 Year
  Sex: Male

DRUGS (1)
  1. HUMIRA [Suspect]
     Active Substance: ADALIMUMAB
     Indication: CROHN^S DISEASE
     Route: 058
     Dates: start: 20110502, end: 20150614

REACTIONS (8)
  - Urinary tract infection bacterial [Recovering/Resolving]
  - Impaired healing [Not Recovered/Not Resolved]
  - Ureteric stenosis [Recovered/Resolved]
  - Pyrexia [Recovered/Resolved]
  - Fistula [Not Recovered/Not Resolved]
  - Pyrexia [Unknown]
  - Urinary tract infection [Not Recovered/Not Resolved]
  - Enterostomy [Not Recovered/Not Resolved]

NARRATIVE: CASE EVENT DATE: 20150502
